FAERS Safety Report 26201971 (Version 1)
Quarter: 2025Q4

REPORT INFORMATION
  Report Type: Spontaneous
  Country: US (occurrence: US)
  Receive Date: 20251226
  Receipt Date: 20251226
  Transmission Date: 20260118
  Serious: No
  Sender: SANOFI AVENTIS
  Company Number: US-SA-2025SA377775

PATIENT
  Age: 35 Year
  Sex: Female

DRUGS (16)
  1. WAYRILZ [Suspect]
     Active Substance: RILZABRUTINIB
     Indication: Immune thrombocytopenia
     Dosage: 400 MG, BID
     Route: 048
     Dates: start: 20251120
  2. KEPPRA [Concomitant]
     Active Substance: LEVETIRACETAM
  3. BUSPIRONE [Concomitant]
     Active Substance: BUSPIRONE HYDROCHLORIDE
  4. SYMBICORT [Concomitant]
     Active Substance: BUDESONIDE\FORMOTEROL FUMARATE DIHYDRATE
  5. PROAIR HFA [Concomitant]
     Active Substance: ALBUTEROL SULFATE
  6. METOPROLOL [Concomitant]
     Active Substance: METOPROLOL
  7. AMLODIPINE [Concomitant]
     Active Substance: AMLODIPINE BESYLATE
  8. ESCITALOPRAM [Concomitant]
     Active Substance: ESCITALOPRAM OXALATE
  9. PROMACTA [Concomitant]
     Active Substance: ELTROMBOPAG OLAMINE
  10. FOLIC ACID [Concomitant]
     Active Substance: FOLIC ACID
  11. MAGNESIUM OXIDE [Concomitant]
     Active Substance: MAGNESIUM OXIDE
  12. GAMMAGARD [Concomitant]
     Active Substance: HUMAN IMMUNOGLOBULIN G
  13. METOPROLOL TARTRATE [Concomitant]
     Active Substance: METOPROLOL TARTRATE
  14. BUSPIRONE HCL [Concomitant]
     Active Substance: BUSPIRONE HYDROCHLORIDE
  15. ESCITALOPRAM OXALATE [Concomitant]
     Active Substance: ESCITALOPRAM OXALATE
  16. AMLODIPINE BESYLATE [Concomitant]
     Active Substance: AMLODIPINE BESYLATE

REACTIONS (4)
  - Night sweats [Not Recovered/Not Resolved]
  - Insomnia [Not Recovered/Not Resolved]
  - Nausea [Recovered/Resolved]
  - Diarrhoea [Recovered/Resolved]

NARRATIVE: CASE EVENT DATE: 20250101
